FAERS Safety Report 11655174 (Version 3)
Quarter: 2015Q4

REPORT INFORMATION
  Report Type: Report from Study
  Country: US (occurrence: US)
  Receive Date: 20151023
  Receipt Date: 20151116
  Transmission Date: 20160304
  Serious: Yes (Hospitalization)
  Sender: FDA-Public Use
  Company Number: US-BIOGENIDEC-2015BI140897

PATIENT
  Age: 50 Year
  Sex: Female

DRUGS (2)
  1. TYSABRI [Suspect]
     Active Substance: NATALIZUMAB
     Indication: MULTIPLE SCLEROSIS
     Route: 042
     Dates: start: 20141114
  2. AMPYRA [Concomitant]
     Active Substance: DALFAMPRIDINE
     Indication: MULTIPLE SCLEROSIS
     Route: 048
     Dates: start: 201506

REACTIONS (12)
  - Dysstasia [Not Recovered/Not Resolved]
  - Cholecystitis infective [Recovered/Resolved with Sequelae]
  - Gallbladder oedema [Recovered/Resolved with Sequelae]
  - Urinary tract infection [Recovered/Resolved]
  - Abasia [Not Recovered/Not Resolved]
  - Red blood cell count increased [Unknown]
  - Blood cholesterol increased [Recovered/Resolved with Sequelae]
  - Liver function test abnormal [Unknown]
  - Rotator cuff syndrome [Not Recovered/Not Resolved]
  - White blood cell count increased [Unknown]
  - Arrhythmia [Not Recovered/Not Resolved]
  - Coordination abnormal [Not Recovered/Not Resolved]

NARRATIVE: CASE EVENT DATE: 2014
